FAERS Safety Report 11703049 (Version 4)
Quarter: 2016Q1

REPORT INFORMATION
  Report Type: Spontaneous
  Country: US (occurrence: US)
  Receive Date: 20151105
  Receipt Date: 20160204
  Transmission Date: 20160525
  Serious: Yes (Hospitalization, Other)
  Sender: FDA-Public Use
  Company Number: US-PFIZER INC-2015362188

PATIENT
  Age: 61 Year
  Sex: Female
  Weight: 144 kg

DRUGS (8)
  1. HUMALOG [Concomitant]
     Active Substance: INSULIN LISPRO
     Dosage: 22 UNITS PLUS 2 UNITS FOR EACH 50 ELEVATION SLIDING SCALE, 3X/DAY
  2. LYRICA [Suspect]
     Active Substance: PREGABALIN
     Indication: SENSORY DISTURBANCE
     Dosage: 75 MG, 2X/DAY
     Route: 048
     Dates: start: 20150413
  3. LYRICA [Suspect]
     Active Substance: PREGABALIN
     Indication: DIABETIC NEUROPATHY
  4. RANITIDINE [Concomitant]
     Active Substance: RANITIDINE\RANITIDINE HYDROCHLORIDE
     Indication: GASTROOESOPHAGEAL REFLUX DISEASE
     Dosage: UNK, AS NEEDED
  5. LYRICA [Suspect]
     Active Substance: PREGABALIN
     Indication: PAIN
     Dosage: 75 MG, 2X/DAY, IN THE MORNING AND AT NIGHT
     Route: 048
     Dates: start: 201507, end: 20151016
  6. LYRICA [Suspect]
     Active Substance: PREGABALIN
     Indication: PAIN IN EXTREMITY
     Dosage: 10 MG, 2X/DAY
     Route: 048
     Dates: start: 201407, end: 201510
  7. LASIX [Suspect]
     Active Substance: FUROSEMIDE
     Indication: SWELLING
     Dosage: 40 MG, TWICE A DAY AS NEEDED
  8. POTASSIUM [Concomitant]
     Active Substance: POTASSIUM
     Dosage: 10 MEQ ERTB SAND, TAKES WHEN SHE TAKES HER LASIX

REACTIONS (14)
  - Lymphoedema [Recovered/Resolved]
  - Cough [Recovered/Resolved]
  - Cognitive disorder [Not Recovered/Not Resolved]
  - Blood urine present [Recovered/Resolved]
  - Contusion [Recovered/Resolved]
  - Stress urinary incontinence [Recovered/Resolved]
  - Weight increased [Recovered/Resolved]
  - Diarrhoea [Not Recovered/Not Resolved]
  - Pruritus [Not Recovered/Not Resolved]
  - Pollakiuria [Not Recovered/Not Resolved]
  - Blood glucose increased [Recovered/Resolved]
  - Paraesthesia [Not Recovered/Not Resolved]
  - Back pain [Not Recovered/Not Resolved]
  - Swelling [Recovered/Resolved]

NARRATIVE: CASE EVENT DATE: 201507
